FAERS Safety Report 4544976-0 (Version None)
Quarter: 2005Q1

REPORT INFORMATION
  Report Type: 
  Country: None (occurrence: None)
  Receive Date: 20050104
  Receipt Date: 20041222
  Transmission Date: 20050727
  Serious: Yes (Disabling)
  Sender: FDA-Public Use
  Company Number: CERZ-10724

PATIENT
  Age: 81 Year
  Sex: Female
  Weight: 65.7716 kg

DRUGS (1)
  1. CEREZYME [Suspect]
     Indication: GAUCHER'S DISEASE
     Dosage: 2200 UNITS Q2WKS IV
     Route: 042
     Dates: start: 19961217, end: 20041101

REACTIONS (3)
  - DIZZINESS [None]
  - FALL [None]
  - UPPER LIMB FRACTURE [None]
